FAERS Safety Report 6804384-6 (Version None)
Quarter: 2010Q2

REPORT INFORMATION
  Report Type: 
  Country: None (occurrence: None)
  Receive Date: 20100628
  Receipt Date: 20070313
  Transmission Date: 20101027
  Serious: No
  Sender: FDA-Public Use
  Company Number: US-PFIZER INC-2007021110

PATIENT
  Sex: Female
  Weight: 45.36 kg

DRUGS (3)
  1. XALATAN [Suspect]
     Indication: GLAUCOMA
     Dosage: 1 DROP IN LEFT EYE
     Route: 031
     Dates: start: 20050601
  2. VITAMINS [Concomitant]
  3. ESTROGENS [Concomitant]

REACTIONS (1)
  - ALOPECIA [None]
